FAERS Safety Report 8501808-3 (Version None)
Quarter: 2012Q3

REPORT INFORMATION
  Report Type: 
  Country: None (occurrence: None)
  Receive Date: 20120705
  Receipt Date: 20120705
  Transmission Date: 20120928
  Serious: Yes (Other)
  Sender: FDA-Public Use
  Company Number: None

PATIENT
  Sex: Female
  Weight: 88.905 kg

DRUGS (1)
  1. PHENAZOPYRIDINE HCL TAB [Suspect]
     Indication: BURNING SENSATION
     Dosage: 200MG 3 TIMES A DAY PO
     Route: 048
     Dates: start: 20120626, end: 20120627

REACTIONS (2)
  - NO THERAPEUTIC RESPONSE [None]
  - BURNING SENSATION [None]
